FAERS Safety Report 6814282-X (Version None)
Quarter: 2010Q3

REPORT INFORMATION
  Report Type: 
  Country: None (occurrence: None)
  Receive Date: 20100702
  Receipt Date: 20100624
  Transmission Date: 20110219
  Serious: Yes (Hospitalization)
  Sender: FDA-Public Use
  Company Number: FR-JNJFOC-20100606946

PATIENT
  Age: 82 Year
  Sex: Female

DRUGS (18)
  1. TAVANIC [Suspect]
     Indication: INFECTION
     Route: 065
  2. VANCOMYCIN [Suspect]
     Indication: INFECTION
     Route: 048
  3. VANCOMYCIN [Suspect]
     Route: 048
  4. MOPRAL [Concomitant]
     Route: 065
  5. DAFALGAN [Concomitant]
     Route: 065
  6. LEVOTHYROXINE SODIUM [Concomitant]
     Route: 065
  7. LASIX [Concomitant]
     Route: 065
  8. TOPALGIC [Concomitant]
     Route: 065
  9. FLAGYL [Concomitant]
     Route: 065
  10. AMOXICILLIN [Concomitant]
     Route: 065
  11. GENTAMICIN [Concomitant]
     Route: 065
  12. CALCIPARINE [Concomitant]
     Route: 065
  13. MORPHINE [Concomitant]
     Route: 065
  14. CARDEGIC [Concomitant]
     Route: 065
  15. TAHOR [Concomitant]
     Route: 065
  16. CORDARONE [Concomitant]
     Route: 065
  17. ZOLPIDEM [Concomitant]
     Route: 065
  18. LANTUS [Concomitant]
     Route: 065

REACTIONS (5)
  - CHOLESTASIS [None]
  - DRUG RASH WITH EOSINOPHILIA AND SYSTEMIC SYMPTOMS [None]
  - EOSINOPHILIA [None]
  - RENAL FAILURE ACUTE [None]
  - TOXIC SKIN ERUPTION [None]
